FAERS Safety Report 6678251-5 (Version None)
Quarter: 2010Q2

REPORT INFORMATION
  Report Type: 
  Country: None (occurrence: None)
  Receive Date: 20100408
  Receipt Date: 20100408
  Transmission Date: 20101027
  Serious: Yes (Life-Threatening)
  Sender: FDA-Public Use
  Company Number: None

PATIENT
  Sex: Female
  Weight: 54.4316 kg

DRUGS (1)
  1. CYMBALTA [Suspect]
     Indication: FIBROMYALGIA
     Dosage: 60MG BID PO
     Route: 048

REACTIONS (14)
  - ABNORMAL BEHAVIOUR [None]
  - AGGRESSION [None]
  - ANXIETY [None]
  - COMPLETED SUICIDE [None]
  - HOSTILITY [None]
  - INDIFFERENCE [None]
  - INSOMNIA [None]
  - LOSS OF EMPLOYMENT [None]
  - MEMORY IMPAIRMENT [None]
  - MORBID THOUGHTS [None]
  - NERVOUS SYSTEM DISORDER [None]
  - QUALITY OF LIFE DECREASED [None]
  - VICTIM OF SEXUAL ABUSE [None]
  - VOMITING [None]
